FAERS Safety Report 18918839 (Version 1)
Quarter: 2021Q1

REPORT INFORMATION
  Report Type: Spontaneous
  Country: NO (occurrence: NO)
  Receive Date: 20210220
  Receipt Date: 20210220
  Transmission Date: 20210420
  Serious: Yes (Disabling)
  Sender: FDA-Public Use
  Company Number: NO-AMGEN-NORSP2021026969

PATIENT
  Age: 73 Year
  Sex: Female

DRUGS (1)
  1. AIMOVIG [Suspect]
     Active Substance: ERENUMAB-AOOE
     Indication: MIGRAINE
     Dosage: 140 MILLIGRAM, Q4WK
     Route: 058
     Dates: start: 202010

REACTIONS (9)
  - Muscular weakness [Recovering/Resolving]
  - Eye pruritus [Unknown]
  - Pain [Unknown]
  - Tremor [Unknown]
  - Joint stiffness [Recovering/Resolving]
  - Muscle spasms [Recovering/Resolving]
  - Rhinorrhoea [Unknown]
  - Fatigue [Unknown]
  - Musculoskeletal stiffness [Unknown]

NARRATIVE: CASE EVENT DATE: 202010
